FAERS Safety Report 17211133 (Version 2)
Quarter: 2020Q1

REPORT INFORMATION
  Report Type: Spontaneous
  Country: US (occurrence: US)
  Receive Date: 20191228
  Receipt Date: 20200323
  Transmission Date: 20200409
  Serious: No
  Sender: FDA-Public Use
  Company Number: US-BIOGEN-2019BI00801944

PATIENT
  Sex: Female

DRUGS (13)
  1. AVONEX [Suspect]
     Active Substance: INTERFERON BETA-1A
  2. AVONEX [Suspect]
     Active Substance: INTERFERON BETA-1A
  3. AVONEX [Suspect]
     Active Substance: INTERFERON BETA-1A
  4. AVONEX [Suspect]
     Active Substance: INTERFERON BETA-1A
  5. AVONEX [Suspect]
     Active Substance: INTERFERON BETA-1A
  6. AVONEX [Suspect]
     Active Substance: INTERFERON BETA-1A
  7. AVONEX [Suspect]
     Active Substance: INTERFERON BETA-1A
  8. AVONEX [Suspect]
     Active Substance: INTERFERON BETA-1A
  9. AVONEX [Suspect]
     Active Substance: INTERFERON BETA-1A
  10. AVONEX [Suspect]
     Active Substance: INTERFERON BETA-1A
  11. AVONEX [Suspect]
     Active Substance: INTERFERON BETA-1A
  12. AVONEX [Suspect]
     Active Substance: INTERFERON BETA-1A
     Indication: MULTIPLE SCLEROSIS
     Route: 065
     Dates: start: 19980501
  13. AVONEX [Suspect]
     Active Substance: INTERFERON BETA-1A

REACTIONS (16)
  - Decreased immune responsiveness [Unknown]
  - Feeling jittery [Unknown]
  - Heart rate abnormal [Unknown]
  - Muscle spasms [Unknown]
  - Dizziness [Unknown]
  - Blood pressure abnormal [Unknown]
  - Panic attack [Unknown]
  - Hyperaesthesia [Unknown]
  - Asthma [Unknown]
  - Body temperature fluctuation [Unknown]
  - Respiratory disorder [Unknown]
  - Influenza [Unknown]
  - Abdominal discomfort [Unknown]
  - Headache [Unknown]
  - Influenza like illness [Unknown]
  - Chest discomfort [Unknown]
